FAERS Safety Report 8764798 (Version 1)
Quarter: 2012Q4

REPORT INFORMATION
  Report Type: 
  Country: CN (occurrence: CN)
  Receive Date: 20120831
  Receipt Date: 20120831
  Transmission Date: 20130627
  Serious: Yes (Death, Hospitalization, Other)
  Sender: FDA-Public Use
  Company Number: CN-ROCHE-1107969

PATIENT
  Age: 66 Year
  Sex: Male
  Weight: 50 kg

DRUGS (1)
  1. AVASTIN [Suspect]
     Indication: NEOPLASM
     Route: 041
     Dates: start: 20110619, end: 20110709

REACTIONS (7)
  - Death [Fatal]
  - Haemorrhage [Unknown]
  - Dyspnoea [Not Recovered/Not Resolved]
  - Hypoaesthesia [Unknown]
  - Pneumothorax [Not Recovered/Not Resolved]
  - Pleural effusion [Unknown]
  - Blood pressure increased [Unknown]
